FAERS Safety Report 14533319 (Version 1)
Quarter: 2018Q1

REPORT INFORMATION
  Report Type: Spontaneous
  Country: US (occurrence: US)
  Receive Date: 20180215
  Receipt Date: 20180215
  Transmission Date: 20180509
  Serious: No
  Sender: FDA-Public Use
  Company Number: US-TRIS PHARMA, INC-2018TRISPO00039

PATIENT

DRUGS (6)
  1. ROBITUSSIN DAY AND NIGHT [Concomitant]
     Indication: COUGH
     Dosage: 20 ML, EVERY 4 HOURS
     Route: 048
  2. CORICIDIN HBP CHEST CONGESTION, COUGH AND SORE THROAT [Concomitant]
     Indication: COUGH
     Dosage: UNK
     Route: 065
  3. DEXTROMETHORPHAN POLISTIREX [Suspect]
     Active Substance: DEXTROMETHORPHAN HYDROBROMIDE
     Indication: COUGH
     Dosage: 10 ML, BID (EVERY 12 HOURS)
     Route: 048
     Dates: start: 20180107, end: 20180108
  4. DEXTROMETHORPHAN POLISTIREX [Suspect]
     Active Substance: DEXTROMETHORPHAN HYDROBROMIDE
     Indication: NASOPHARYNGITIS
  5. CORICIDIN HBP CHEST CONGESTION, COUGH AND SORE THROAT [Concomitant]
     Indication: NASOPHARYNGITIS
  6. ROBITUSSIN DAY AND NIGHT [Concomitant]
     Indication: NASOPHARYNGITIS

REACTIONS (2)
  - Rash [Not Recovered/Not Resolved]
  - Erythema [Not Recovered/Not Resolved]

NARRATIVE: CASE EVENT DATE: 20180108
